FAERS Safety Report 8607733-1 (Version None)
Quarter: 2012Q3

REPORT INFORMATION
  Report Type: 
  Country: None (occurrence: None)
  Receive Date: 20120821
  Receipt Date: 20120815
  Transmission Date: 20120928
  Serious: Yes (Disabling)
  Sender: FDA-Public Use
  Company Number: US-PFIZER INC-2012200096

PATIENT
  Age: 41 Year
  Sex: Male
  Weight: 63.5 kg

DRUGS (7)
  1. NEURONTIN [Suspect]
     Indication: NEURALGIA
     Dosage: 300 MG, 3X/DAY
     Route: 048
     Dates: start: 20080801, end: 20080101
  2. NEURONTIN [Suspect]
     Dosage: 600 MG, 3X/DAY
     Route: 048
  3. NEURONTIN [Suspect]
     Dosage: UNK, 3X/DAY
     Route: 048
  4. FENTANYL [Concomitant]
     Indication: NEURALGIA
     Dosage: UNK
  5. NEURONTIN [Suspect]
     Dosage: 600 MG, 3X/DAY
     Route: 048
     Dates: start: 20080101
  6. PERCOCET [Concomitant]
     Indication: PAIN
     Dosage: UNK
  7. FLEX-ALL 454 [Concomitant]
     Indication: MUSCLE RELAXANT THERAPY
     Dosage: UNK

REACTIONS (2)
  - NERVE INJURY [None]
  - DRUG INEFFECTIVE [None]
